FAERS Safety Report 20038562 (Version 1)
Quarter: 2021Q4

REPORT INFORMATION
  Report Type: Spontaneous
  Country: US (occurrence: US)
  Receive Date: 20211105
  Receipt Date: 20211105
  Transmission Date: 20220303
  Serious: No
  Sender: FDA-Public Use
  Company Number: US-SUNOVION-2021SUN004025

PATIENT
  Sex: Female

DRUGS (2)
  1. LEVALBUTEROL TARTRATE [Suspect]
     Active Substance: LEVALBUTEROL TARTRATE
     Dosage: UNK
     Route: 055
  2. COVID-19 VACCINE NOS [Suspect]
     Active Substance: COVID-19 VACCINE NOS

REACTIONS (9)
  - Renal disorder [Unknown]
  - Migraine [Unknown]
  - Visual impairment [Unknown]
  - Lip swelling [Unknown]
  - Chest discomfort [Not Recovered/Not Resolved]
  - Weight increased [Unknown]
  - Paraesthesia oral [Unknown]
  - Dyspnoea [Not Recovered/Not Resolved]
  - Swollen tongue [Unknown]
